FAERS Safety Report 10442465 (Version 2)
Quarter: 2014Q4

REPORT INFORMATION
  Report Type: Spontaneous
  Country: US (occurrence: None)
  Receive Date: 20140908
  Receipt Date: 20141219
  Transmission Date: 20150528
  Serious: Yes (Other)
  Sender: FDA-Public Use
  Company Number: 2014SA120340

PATIENT
  Sex: Female

DRUGS (2)
  1. GOLD BOND ULTIMATE HEALING CREAM [Concomitant]
  2. GOLD BOND MEDICATED FOOT [Suspect]
     Active Substance: MENTHOL

REACTIONS (3)
  - Hemiparesis [None]
  - Rash [None]
  - Cerebral haemorrhage [None]
